FAERS Safety Report 6624401-6 (Version None)
Quarter: 2010Q1

REPORT INFORMATION
  Report Type: 
  Country: None (occurrence: None)
  Receive Date: 20100310
  Receipt Date: 20091016
  Transmission Date: 20100710
  Serious: Yes (Other)
  Sender: FDA-Public Use
  Company Number: US-BIOGENIDEC-2009BI033350

PATIENT
  Age: 41 Year
  Sex: Male
  Weight: 86 kg

DRUGS (2)
  1. AVONEX [Suspect]
     Indication: MULTIPLE SCLEROSIS
     Route: 030
     Dates: start: 20091015
  2. TYLENOL-500 [Concomitant]
     Indication: PREMEDICATION
     Route: 048
     Dates: start: 20091015, end: 20091015

REACTIONS (6)
  - CHILLS [None]
  - CONVULSION [None]
  - FATIGUE [None]
  - GAIT DISTURBANCE [None]
  - HYPOAESTHESIA [None]
  - INJECTION SITE PAIN [None]
